FAERS Safety Report 10872266 (Version 1)
Quarter: 2015Q1

REPORT INFORMATION
  Report Type: Report from Study
  Country: US (occurrence: US)
  Receive Date: 20150226
  Receipt Date: 20150226
  Transmission Date: 20150721
  Serious: Yes (Hospitalization)
  Sender: FDA-Public Use
  Company Number: US-EXELIXIS-CABO-14004497

PATIENT
  Age: 56 Year
  Sex: Male

DRUGS (6)
  1. CABOZANTINIB [Suspect]
     Active Substance: CABOZANTINIB
     Indication: THYROID CANCER
     Dosage: 140 MG, QD
     Route: 048
     Dates: start: 20140624, end: 20140717
  2. CABOZANTINIB [Suspect]
     Active Substance: CABOZANTINIB
     Dosage: 100 MG, QD
     Route: 048
     Dates: start: 20140718, end: 20140811
  3. OMEPRAZOLE. [Concomitant]
     Active Substance: OMEPRAZOLE
  4. CABOZANTINIB [Suspect]
     Active Substance: CABOZANTINIB
     Dosage: UNK
     Dates: start: 201408, end: 200110
  5. OXYCODONE [Concomitant]
     Active Substance: OXYCODONE
  6. OXYCONTIN [Concomitant]
     Active Substance: OXYCODONE HYDROCHLORIDE

REACTIONS (28)
  - Fatigue [Unknown]
  - Dysgeusia [Not Recovered/Not Resolved]
  - Decreased appetite [Unknown]
  - Hypertension [Unknown]
  - Chest discomfort [Not Recovered/Not Resolved]
  - Flatulence [Unknown]
  - Paraesthesia [Unknown]
  - Hepatomegaly [Unknown]
  - Constipation [Unknown]
  - Diarrhoea [Unknown]
  - Skin disorder [Unknown]
  - Dyspnoea [Not Recovered/Not Resolved]
  - Dysphonia [Unknown]
  - Blister [Recovered/Resolved]
  - Dyspepsia [Unknown]
  - Vomiting [Unknown]
  - Nasal discomfort [Unknown]
  - Stomach mass [Unknown]
  - Abdominal distension [Unknown]
  - Blood pressure increased [Unknown]
  - Glossodynia [Unknown]
  - Stomatitis [Not Recovered/Not Resolved]
  - Nausea [Unknown]
  - Peripheral swelling [Unknown]
  - Headache [Unknown]
  - Hair colour changes [Unknown]
  - Eye pain [Unknown]
  - Hepatic cirrhosis [Unknown]

NARRATIVE: CASE EVENT DATE: 2014
